FAERS Safety Report 6111542-5 (Version None)
Quarter: 2009Q1

REPORT INFORMATION
  Report Type: 
  Country: None (occurrence: None)
  Receive Date: 20090309
  Receipt Date: 20090216
  Transmission Date: 20090719
  Serious: Yes (Death, Hospitalization)
  Sender: FDA-Public Use
  Company Number: 2009EU000657

PATIENT
  Age: 23 Year
  Sex: Male
  Weight: 62 kg

DRUGS (5)
  1. PROGRAF [Suspect]
     Indication: RENAL TRANSPLANT
     Dosage: 4 MG, UID/QD, ORAL; 0.5 MG, UID/QD, ORAL
     Route: 048
     Dates: start: 20081201, end: 20090201
  2. PROGRAF [Suspect]
     Indication: RENAL TRANSPLANT
     Dosage: 4 MG, UID/QD, ORAL; 0.5 MG, UID/QD, ORAL
     Route: 048
     Dates: start: 20090201, end: 20090214
  3. METIPRED        (METHYLPREDNISOLONE SODIUM SUCCINATE) [Suspect]
     Indication: RENAL TRANSPLANT
     Dosage: 15 MG, UID/QD, ORAL
     Route: 048
     Dates: start: 20090101, end: 20090205
  4. MYFORTIC [Suspect]
     Indication: RENAL TRANSPLANT
     Dosage: 720 MG, /D, ORAL
     Route: 048
     Dates: start: 20090101, end: 20090205
  5. NEORAL [Concomitant]

REACTIONS (2)
  - HEPATITIS B [None]
  - PNEUMONIA [None]
